FAERS Safety Report 4732067-5 (Version None)
Quarter: 2005Q3

REPORT INFORMATION
  Report Type: 
  Country: None (occurrence: None)
  Receive Date: 20050721
  Receipt Date: 20050412
  Transmission Date: 20060218
  Serious: No
  Sender: FDA-Public Use
  Company Number: 2005SP000151

PATIENT
  Age: 73 Year
  Sex: Male
  Weight: 92.5338 kg

DRUGS (2)
  1. LUNESTA [Suspect]
     Indication: INSOMNIA
     Dosage: 3 MG;HS
     Dates: start: 20050405
  2. AMBIEN [Concomitant]

REACTIONS (4)
  - DRUG INEFFECTIVE [None]
  - INSOMNIA [None]
  - NERVOUSNESS [None]
  - TENSION [None]
